FAERS Safety Report 4529594-2 (Version None)
Quarter: 2004Q4

REPORT INFORMATION
  Report Type: 
  Country: None (occurrence: None)
  Receive Date: 20041215
  Receipt Date: 20041215
  Transmission Date: 20050328
  Serious: Yes (Hospitalization)
  Sender: FDA-Public Use
  Company Number: None

PATIENT
  Age: 46 Year
  Sex: Female
  Weight: 103 kg

DRUGS (8)
  1. CELECOXIB 200 MG PFIZER [Suspect]
     Indication: ARTHRITIS
     Dosage: 200 MG PO BID
     Route: 048
     Dates: start: 20031101, end: 20041121
  2. CLONAZEPAM [Concomitant]
  3. GABAPENTIN [Concomitant]
  4. GEMFIBROZIL [Concomitant]
  5. TEMAZEPAM [Concomitant]
  6. VERAPAMIL [Concomitant]
  7. ACETAMINOPHEN/CAFFINE/BUTALBITAL (FIORICET) [Concomitant]
  8. NITRO-BID [Concomitant]

REACTIONS (4)
  - BLOOD TRIGLYCERIDES INCREASED [None]
  - FLUSHING [None]
  - PANCREATITIS [None]
  - VOMITING PROJECTILE [None]
